FAERS Safety Report 21072899 (Version 6)
Quarter: 2022Q4

REPORT INFORMATION
  Report Type: Report from Study
  Country: JP (occurrence: JP)
  Receive Date: 20220712
  Receipt Date: 20221014
  Transmission Date: 20230112
  Serious: Yes (Hospitalization)
  Sender: FDA-Public Use
  Company Number: JP-SEATTLE GENETICS-2022SGN06384

PATIENT
  Age: 60 Year
  Sex: Female
  Weight: 54.8 kg

DRUGS (18)
  1. TUCATINIB [Suspect]
     Active Substance: TUCATINIB
     Dosage: 250 MG, BID
     Route: 048
     Dates: end: 20220711
  2. TUCATINIB [Suspect]
     Active Substance: TUCATINIB
     Dosage: 300 MG, BID
     Route: 048
     Dates: start: 20210602
  3. ADO-TRASTUZUMAB EMTANSINE [Suspect]
     Active Substance: ADO-TRASTUZUMAB EMTANSINE
     Dosage: 3.6 MG/KG, Q21D
     Route: 042
     Dates: start: 20210602
  4. ADO-TRASTUZUMAB EMTANSINE [Suspect]
     Active Substance: ADO-TRASTUZUMAB EMTANSINE
     Dosage: 3.0 MG/KG, Q21D
     Route: 042
     Dates: end: 20220706
  5. FERRIC SODIUM CITRATE [Concomitant]
     Active Substance: FERRIC SODIUM CITRATE
     Indication: Anaemia
     Dosage: 100 MG
     Dates: start: 20211213
  6. FERRIC SODIUM CITRATE [Concomitant]
     Active Substance: FERRIC SODIUM CITRATE
     Indication: Duodenal ulcer
  7. ATORVASTATIN CALCIUM [Concomitant]
     Active Substance: ATORVASTATIN CALCIUM
     Indication: Hypercholesterolaemia
     Dosage: 5 MG
     Dates: start: 20211213
  8. OLMESARTAN MEDOXOMIL [Concomitant]
     Active Substance: OLMESARTAN MEDOXOMIL
     Indication: Hypertension
     Dosage: 10 MG
     Dates: start: 20211218
  9. AMLODIPINE BESYLATE [Concomitant]
     Active Substance: AMLODIPINE BESYLATE
     Indication: Hypertension
     Dosage: 5 MG
     Dates: start: 20211218
  10. GLYCYRON [GLYCYRRHIZIC ACID, AMMONIUM SALT] [Concomitant]
     Indication: Hepatic function abnormal
     Dosage: 3 DF
     Dates: start: 20211213
  11. URSODIOL [Concomitant]
     Active Substance: URSODIOL
     Indication: Hepatic function abnormal
     Dosage: 150 MG
     Dates: start: 20211213
  12. FUROSEMIDE [Concomitant]
     Active Substance: FUROSEMIDE
     Indication: Oedema peripheral
     Dosage: 20 MG
     Dates: start: 20220112
  13. SPIRONOLACTONE [Concomitant]
     Active Substance: SPIRONOLACTONE
     Indication: Oedema peripheral
     Dosage: 50 MG
     Dates: start: 20220112
  14. GENTAMICIN SULFATE [Concomitant]
     Active Substance: GENTAMICIN SULFATE
     Indication: Epistaxis
     Dosage: APPLICATION
     Dates: start: 20220228
  15. FAMOTIDINE [Concomitant]
     Active Substance: FAMOTIDINE
     Indication: Duodenal ulcer
     Dosage: 20 MG
     Dates: start: 20220328, end: 20220629
  16. DEXAMETHASONE [Concomitant]
     Active Substance: DEXAMETHASONE
     Indication: Brain oedema
     Dosage: UNK
     Dates: start: 20220618
  17. ESOMEPRAZOLE MAGNESIUM [Concomitant]
     Active Substance: ESOMEPRAZOLE MAGNESIUM
     Indication: Dyspepsia
     Dosage: 20 MG
     Dates: start: 20220630
  18. MOSAPRIDE CITRATE DIHYDRATE [Concomitant]
     Active Substance: MOSAPRIDE CITRATE DIHYDRATE
     Indication: Dyspepsia
     Dosage: UNK
     Dates: start: 20220630

REACTIONS (3)
  - Renal impairment [Recovering/Resolving]
  - Dyspnoea [Recovering/Resolving]
  - Drug-induced liver injury [Not Recovered/Not Resolved]

NARRATIVE: CASE EVENT DATE: 20220706
